FAERS Safety Report 11798345 (Version 1)
Quarter: 2015Q4

REPORT INFORMATION
  Report Type: Report from Study
  Country: VE (occurrence: VE)
  Receive Date: 20151203
  Receipt Date: 20151203
  Transmission Date: 20160305
  Serious: Yes (Hospitalization, Other)
  Sender: FDA-Public Use
  Company Number: PHHY2015VE156607

PATIENT
  Sex: Male

DRUGS (8)
  1. SANDOSTATIN LAR DEPOT [Suspect]
     Active Substance: OCTREOTIDE ACETATE
     Indication: METASTASES TO LIVER
  2. VITAMIN A [Concomitant]
     Active Substance: VITAMIN A
     Indication: PRODUCT USED FOR UNKNOWN INDICATION
     Dosage: 1 G, QD
     Route: 065
  3. AFINITOR [Suspect]
     Active Substance: EVEROLIMUS
     Indication: METASTASES TO LIVER
  4. SANDOSTATIN LAR DEPOT [Suspect]
     Active Substance: OCTREOTIDE ACETATE
     Indication: NEUROENDOCRINE TUMOUR
     Dosage: 20 MG, QMO, MONTHLY
     Route: 065
  5. PRADAXA [Concomitant]
     Active Substance: DABIGATRAN ETEXILATE MESYLATE
     Indication: ANTICOAGULANT THERAPY
     Route: 065
  6. VITAMIIN C [Concomitant]
     Active Substance: ASCORBIC ACID
     Indication: PRODUCT USED FOR UNKNOWN INDICATION
     Dosage: 1 G, QD
     Route: 065
  7. AFINITOR [Suspect]
     Active Substance: EVEROLIMUS
     Indication: NEUROENDOCRINE TUMOUR
     Dosage: 10 MG, QD
     Route: 048
  8. METHADONE [Concomitant]
     Active Substance: METHADONE HYDROCHLORIDE
     Indication: PAIN
     Dosage: 50 MG, QD
     Route: 065

REACTIONS (20)
  - Thrombosis [Unknown]
  - Stomatitis [Unknown]
  - Hypoaesthesia [Unknown]
  - Product use issue [Unknown]
  - Neuropathy peripheral [Unknown]
  - Oral pain [Unknown]
  - Oedema mouth [Unknown]
  - Grip strength decreased [Unknown]
  - Osteoporosis [Unknown]
  - Skin disorder [Unknown]
  - Osteopenia [Unknown]
  - Musculoskeletal discomfort [Unknown]
  - Inflammation [Unknown]
  - Gastric disorder [Unknown]
  - Oedema peripheral [Unknown]
  - Hyperaesthesia [Unknown]
  - Dysgeusia [Unknown]
  - Presyncope [Unknown]
  - Hearing impaired [Unknown]
  - Visual impairment [Unknown]
